FAERS Safety Report 25548761 (Version 1)
Quarter: 2025Q3

REPORT INFORMATION
  Report Type: Spontaneous
  Country: US (occurrence: US)
  Receive Date: 20250714
  Receipt Date: 20250714
  Transmission Date: 20251021
  Serious: Yes (Hospitalization, Other)
  Sender: SANOFI AVENTIS
  Company Number: US-SA-2025SA176565

PATIENT
  Age: 58 Year
  Sex: Female

DRUGS (1)
  1. CERDELGA [Suspect]
     Active Substance: ELIGLUSTAT
     Indication: Gaucher^s disease
     Dosage: 84 MG, QD
     Route: 048
     Dates: start: 201908

REACTIONS (3)
  - Small intestine ulcer [Unknown]
  - Lung neoplasm malignant [Unknown]
  - Limb operation [Unknown]

NARRATIVE: CASE EVENT DATE: 20250101
